FAERS Safety Report 26205426 (Version 1)
Quarter: 2025Q4

REPORT INFORMATION
  Report Type: Spontaneous
  Country: US (occurrence: US)
  Receive Date: 20251228
  Receipt Date: 20251228
  Transmission Date: 20260117
  Serious: Yes (Hospitalization)
  Sender: BEIGENE
  Company Number: US-BEONEMEDICINES-BGN-2025-023304

PATIENT
  Age: 71 Year
  Sex: Male

DRUGS (1)
  1. BRUKINSA [Suspect]
     Active Substance: ZANUBRUTINIB
     Indication: Chronic lymphocytic leukaemia
     Dosage: UNK

REACTIONS (4)
  - Pancreatitis acute [Unknown]
  - Pain [Unknown]
  - Presyncope [Unknown]
  - Dyspnoea [Unknown]
